FAERS Safety Report 6190772-0 (Version None)
Quarter: 2009Q2

REPORT INFORMATION
  Report Type: 
  Country: None (occurrence: None)
  Receive Date: 20090514
  Receipt Date: 20090508
  Transmission Date: 20091009
  Serious: Yes (Disabling)
  Sender: FDA-Public Use
  Company Number: US-ELI_LILLY_AND_COMPANY-US200905001878

PATIENT
  Sex: Female

DRUGS (2)
  1. FORTEO [Suspect]
     Dates: start: 20060101
  2. FORTEO [Suspect]
     Dates: start: 20090401

REACTIONS (7)
  - ABASIA [None]
  - ABDOMINAL DISCOMFORT [None]
  - ARTHRALGIA [None]
  - MUSCLE SPASMS [None]
  - OSTEOPOROSIS [None]
  - PAIN IN EXTREMITY [None]
  - SWELLING [None]
